FAERS Safety Report 12908321 (Version 1)
Quarter: 2016Q4

REPORT INFORMATION
  Report Type: Spontaneous
  Country: US (occurrence: US)
  Receive Date: 20161103
  Receipt Date: 20161103
  Transmission Date: 20170207
  Serious: Yes (Other)
  Sender: FDA-Public Use
  Company Number: US-PFIZER INC-3178376

PATIENT
  Age: 13 Year
  Sex: Male

DRUGS (6)
  1. MORPHINE [Concomitant]
     Active Substance: MORPHINE
     Indication: CHOREOATHETOSIS
     Dosage: 2 MG, UNK
  2. PROPOFOL. [Suspect]
     Active Substance: PROPOFOL
     Indication: SEDATION
     Dosage: 50 MG, UNK
     Route: 040
  3. DIAZEPAM. [Concomitant]
     Active Substance: DIAZEPAM
     Dosage: UNK, AS NEEDED (AS NECESSARY)
  4. LORAZEPAM. [Concomitant]
     Active Substance: LORAZEPAM
     Indication: CHOREOATHETOSIS
     Dosage: 2 MG, UNK
  5. ALBUTEROL. [Concomitant]
     Active Substance: ALBUTEROL
     Dosage: UNK, AS NEEDED (FREQ: AS NECESSARY)
  6. CLONIDINE. [Concomitant]
     Active Substance: CLONIDINE
     Dosage: 0.1 MG, 1X/DAY (EVERY EVENING)

REACTIONS (1)
  - Priapism [Recovered/Resolved]
